FAERS Safety Report 6835801-3 (Version None)
Quarter: 2010Q3

REPORT INFORMATION
  Report Type: 
  Country: None (occurrence: None)
  Receive Date: 20100712
  Receipt Date: 20100712
  Transmission Date: 20110219
  Serious: Yes (Other)
  Sender: FDA-Public Use
  Company Number: None

PATIENT
  Age: 52 Year
  Sex: Male
  Weight: 99.3377 kg

DRUGS (1)
  1. BYETTA [Suspect]
     Indication: DIABETES MELLITUS
     Dosage: 5 MG 2 X DAY IM
     Route: 030
     Dates: start: 20100309, end: 20100704

REACTIONS (2)
  - LYMPHOMA [None]
  - RENAL FAILURE [None]
